FAERS Safety Report 17609424 (Version 1)
Quarter: 2020Q2

REPORT INFORMATION
  Report Type: Spontaneous
  Country: US (occurrence: US)
  Receive Date: 20200401
  Receipt Date: 20200401
  Transmission Date: 20200713
  Serious: Yes (Hospitalization)
  Sender: FDA-Public Use
  Company Number: NVSC2020US089189

PATIENT
  Age: 50 Year
  Sex: Male

DRUGS (1)
  1. ADALIMUMAB [Suspect]
     Active Substance: ADALIMUMAB
     Indication: PSORIASIS
     Dosage: UNK
     Route: 065

REACTIONS (6)
  - Oedema [Recovered/Resolved]
  - Henoch-Schonlein purpura [Recovered/Resolved]
  - Arthralgia [Recovered/Resolved]
  - Papule [Recovered/Resolved]
  - Abdominal pain [Recovered/Resolved]
  - Renal impairment [Recovered/Resolved]
